FAERS Safety Report 15434662 (Version 16)
Quarter: 2021Q1

REPORT INFORMATION
  Report Type: Spontaneous
  Country: JP (occurrence: JP)
  Receive Date: 20180927
  Receipt Date: 20210208
  Transmission Date: 20210419
  Serious: Yes (Other)
  Sender: FDA-Public Use
  Company Number: JP-JNJFOC-20170714850

PATIENT
  Age: 63 Year
  Sex: Male

DRUGS (33)
  1. CONTOMIN [Concomitant]
     Active Substance: CHLORPROMAZINE
     Dosage: AT BEDTIME
     Route: 048
  2. AKINETON [Concomitant]
     Active Substance: BIPERIDEN HYDROCHLORIDE
     Route: 048
  3. /00011902/ [Concomitant]
     Route: 048
  4. RISPERDAL [Suspect]
     Active Substance: RISPERIDONE
     Route: 048
  5. RISPERDAL [Suspect]
     Active Substance: RISPERIDONE
     Route: 048
     Dates: start: 201808
  6. CERCINE [Concomitant]
     Active Substance: DIAZEPAM
     Route: 048
  7. JANUVIA [Concomitant]
     Active Substance: SITAGLIPTIN PHOSPHATE
     Dosage: IN THE MORNING
     Route: 048
  8. ISALON [Concomitant]
     Active Substance: UNSPECIFIED INGREDIENT
     Route: 048
  9. VOLTAREN [Concomitant]
     Active Substance: DICLOFENAC SODIUM
     Indication: PAIN
     Route: 065
  10. AKINETON [Concomitant]
     Active Substance: BIPERIDEN HYDROCHLORIDE
     Indication: EXTRAPYRAMIDAL DISORDER
     Route: 030
  11. AKINETON [Concomitant]
     Active Substance: BIPERIDEN HYDROCHLORIDE
     Route: 048
  12. RISPERDAL [Suspect]
     Active Substance: RISPERIDONE
     Indication: DEPRESSION
     Dosage: OFF?LABEL USE 11 RISPERIDONE:1MG
     Route: 048
  13. RISPERDAL [Suspect]
     Active Substance: RISPERIDONE
     Dosage: IN THE MORNING,IN THE AFTERNOON,IN THE EVENING
     Route: 048
     Dates: start: 2020, end: 202009
  14. DOMPERIDONE [Concomitant]
     Active Substance: DOMPERIDONE
     Route: 065
     Dates: start: 2016
  15. SOSEGON [Concomitant]
     Active Substance: PENTAZOCINE
     Indication: PAIN
     Route: 065
  16. HYDROXYZINE HYDROCHLORIDE. [Concomitant]
     Active Substance: HYDROXYZINE HYDROCHLORIDE
     Indication: PAIN
     Route: 065
  17. NAUZELIN [Concomitant]
     Active Substance: DOMPERIDONE
     Route: 065
     Dates: start: 2016
  18. TRAMCET [Suspect]
     Active Substance: ACETAMINOPHEN\TRAMADOL
     Indication: PAIN
     Route: 048
     Dates: start: 2016
  19. RISPERDAL [Suspect]
     Active Substance: RISPERIDONE
     Dosage: AFTER MEALS
     Route: 048
     Dates: end: 201807
  20. RISPERDAL [Suspect]
     Active Substance: RISPERIDONE
     Route: 048
  21. CHLORPROMAZINE HYDROCHLORIDE. [Suspect]
     Active Substance: CHLORPROMAZINE HYDROCHLORIDE
     Indication: PRODUCT USED FOR UNKNOWN INDICATION
     Dosage: AT BED TIME
     Route: 048
  22. MUCOSTA [Concomitant]
     Active Substance: REBAMIPIDE
     Route: 065
  23. PYRETHIA [Concomitant]
     Active Substance: PROMETHAZINE HYDROCHLORIDE
     Dosage: AT BEDTIME
     Route: 048
  24. RISPERDAL [Suspect]
     Active Substance: RISPERIDONE
     Route: 048
     Dates: start: 2018
  25. RISPERDAL [Suspect]
     Active Substance: RISPERIDONE
     Route: 048
     Dates: start: 2020, end: 2020
  26. ATARAX [Concomitant]
     Active Substance: HYDROXYZINE HYDROCHLORIDE
     Indication: PAIN
     Route: 065
  27. AKINETON [Concomitant]
     Active Substance: BIPERIDEN HYDROCHLORIDE
     Indication: EXTRAPYRAMIDAL DISORDER
     Route: 048
  28. RISPERDAL [Suspect]
     Active Substance: RISPERIDONE
     Route: 048
  29. CONTOMIN [Concomitant]
     Active Substance: CHLORPROMAZINE
     Route: 065
  30. CONTOMIN [Concomitant]
     Active Substance: CHLORPROMAZINE
     Dosage: AT BEDTIME
     Route: 048
  31. RISPERDAL [Suspect]
     Active Substance: RISPERIDONE
     Indication: DEPRESSION
     Dosage: RISPERIDONE:1MG/ML
     Route: 048
  32. REBAMIPIDE [Concomitant]
     Active Substance: REBAMIPIDE
     Route: 065
  33. AKINETON [Concomitant]
     Active Substance: BIPERIDEN HYDROCHLORIDE
     Route: 048

REACTIONS (19)
  - Insomnia [Unknown]
  - Dysarthria [Unknown]
  - Normal tension glaucoma [Unknown]
  - Priapism [Not Recovered/Not Resolved]
  - Hallucination, auditory [Recovered/Resolved]
  - Nausea [Unknown]
  - Inappropriate schedule of product administration [Unknown]
  - Pain [Unknown]
  - Eosinophil count increased [Unknown]
  - Cataract [Not Recovered/Not Resolved]
  - Constipation [Unknown]
  - Eczema [Unknown]
  - Gastrooesophageal reflux disease [Unknown]
  - Off label use [Unknown]
  - Blood cholesterol increased [Unknown]
  - Therapeutic product effect incomplete [Unknown]
  - Orthostatic hypotension [Not Recovered/Not Resolved]
  - Malaise [Unknown]
  - Thirst [Unknown]

NARRATIVE: CASE EVENT DATE: 201808
